FAERS Safety Report 5746555-6 (Version None)
Quarter: 2008Q2

REPORT INFORMATION
  Report Type: 
  Country: None (occurrence: None)
  Receive Date: 20080522
  Receipt Date: 20080327
  Transmission Date: 20081010
  Serious: No
  Sender: FDA-Public Use
  Company Number: US-BRISTOL-MYERS SQUIBB COMPANY-14128821

PATIENT
  Sex: Female

DRUGS (5)
  1. CYCLOPHOSPHAMIDE [Suspect]
  2. DOXORUBICIN HCL [Suspect]
  3. PACLITAXEL [Suspect]
  4. TRICOR [Suspect]
  5. TRASTUZUMAB [Suspect]

REACTIONS (1)
  - BLOOD TRIGLYCERIDES INCREASED [None]
